FAERS Safety Report 19294672 (Version 1)
Quarter: 2021Q2

REPORT INFORMATION
  Report Type: Report from Study
  Country: US (occurrence: US)
  Receive Date: 20210524
  Receipt Date: 20210524
  Transmission Date: 20210717
  Serious: Yes (Hospitalization)
  Sender: FDA-Public Use
  Company Number: NVSC2021US109601

PATIENT
  Sex: Male

DRUGS (1)
  1. MAYZENT [Suspect]
     Active Substance: SIPONIMOD
     Indication: MULTIPLE SCLEROSIS
     Dosage: 2 MG
     Route: 048

REACTIONS (4)
  - Pseudomonal sepsis [Recovering/Resolving]
  - Urinary tract infection [Recovering/Resolving]
  - Enterococcal sepsis [Recovering/Resolving]
  - Device related infection [Recovering/Resolving]
